FAERS Safety Report 13949262 (Version 1)
Quarter: 2017Q3

REPORT INFORMATION
  Report Type: Spontaneous
  Country: US (occurrence: US)
  Receive Date: 20170908
  Receipt Date: 20170908
  Transmission Date: 20171128
  Serious: No
  Sender: FDA-Public Use
  Company Number: US-ROCHE-1131459

PATIENT
  Sex: Male

DRUGS (5)
  1. PREDNISONE. [Concomitant]
     Active Substance: PREDNISONE
  2. IVIG [Concomitant]
     Active Substance: HUMAN IMMUNOGLOBULIN G
  3. VINCRISTIN [Concomitant]
     Active Substance: VINCRISTINE
  4. DANAZOL. [Concomitant]
     Active Substance: DANAZOL
  5. RITUXAN [Suspect]
     Active Substance: RITUXIMAB
     Indication: THROMBOCYTOPENIA
     Route: 065
     Dates: start: 20020401

REACTIONS (1)
  - Epistaxis [Unknown]
